FAERS Safety Report 10085252 (Version 1)
Quarter: 2014Q2

REPORT INFORMATION
  Report Type: Spontaneous
  Country: IT (occurrence: IT)
  Receive Date: 20140417
  Receipt Date: 20140417
  Transmission Date: 20141212
  Serious: Yes (Other)
  Sender: FDA-Public Use
  Company Number: PHHY2014IT044307

PATIENT
  Sex: 0

DRUGS (1)
  1. VALPROIC ACID [Suspect]
     Indication: DYSTHYMIC DISORDER
     Dosage: 100 MG, QD
     Route: 048

REACTIONS (1)
  - Pleuropericarditis [Recovered/Resolved]
